FAERS Safety Report 10930111 (Version 2)
Quarter: 2015Q2

REPORT INFORMATION
  Report Type: Report from Study
  Country: US (occurrence: US)
  Receive Date: 20150319
  Receipt Date: 20150408
  Transmission Date: 20150821
  Serious: Yes (Other)
  Sender: FDA-Public Use
  Company Number: US-SA-2015SA032209

PATIENT
  Age: 64 Year
  Sex: Female

DRUGS (8)
  1. LANTUS SOLOSTAR [Suspect]
     Active Substance: INSULIN GLARGINE
     Indication: TYPE 2 DIABETES MELLITUS
     Dosage: DOSE:30 UNIT(S)
     Route: 065
     Dates: start: 20140216
  2. LANTUS SOLOSTAR [Suspect]
     Active Substance: INSULIN GLARGINE
     Indication: TYPE 2 DIABETES MELLITUS
     Dosage: DOSE:30 UNIT(S)
     Route: 065
     Dates: start: 20140216
  3. SOLOSTAR [Concomitant]
     Active Substance: DEVICE
  4. LANTUS SOLOSTAR [Suspect]
     Active Substance: INSULIN GLARGINE
     Indication: TYPE 2 DIABETES MELLITUS
     Dosage: DOSE:20 UNIT(S)
     Route: 065
  5. SOLOSTAR [Concomitant]
     Active Substance: DEVICE
     Dates: start: 20140216
  6. SOLOSTAR [Concomitant]
     Active Substance: DEVICE
     Dates: start: 20140216
  7. LANTUS SOLOSTAR [Suspect]
     Active Substance: INSULIN GLARGINE
     Indication: TYPE 2 DIABETES MELLITUS
     Dosage: DOSE:20 UNIT(S)
     Route: 065
  8. SOLOSTAR [Concomitant]
     Active Substance: DEVICE

REACTIONS (9)
  - Screaming [Unknown]
  - Disability [Unknown]
  - Dizziness [Unknown]
  - Agitation [Unknown]
  - Anger [Unknown]
  - Skin mass [Unknown]
  - Irritability [Unknown]
  - Application site pain [Unknown]
  - Crying [Unknown]

NARRATIVE: CASE EVENT DATE: 20150313
